FAERS Safety Report 8795798 (Version 1)
Quarter: 2012Q4

REPORT INFORMATION
  Report Type: 
  Country: TR (occurrence: TR)
  Receive Date: 20120919
  Receipt Date: 20120919
  Transmission Date: 20130627
  Serious: Yes (Death, Life-Threatening, Other)
  Sender: FDA-Public Use
  Company Number: TR-ROXANE LABORATORIES, INC.-2012-RO-01864RO

PATIENT
  Age: 6 Year
  Sex: Female
  Weight: 18 kg

DRUGS (6)
  1. AZATHIOPRINE [Suspect]
     Indication: SYSTEMIC LUPUS ERYTHEMATOSUS
     Route: 048
  2. DEXAMETHASONE [Suspect]
     Indication: HISTIOCYTOSIS HAEMATOPHAGIC
  3. METHYLPREDNISOLONE [Suspect]
     Indication: SYSTEMIC LUPUS ERYTHEMATOSUS
  4. GAMMA GLOBULIN [Suspect]
     Indication: HISTIOCYTOSIS HAEMATOPHAGIC
     Route: 042
  5. CYCLOSPORINE [Suspect]
     Indication: HISTIOCYTOSIS HAEMATOPHAGIC
  6. ETOPOSIDE [Suspect]
     Indication: HISTIOCYTOSIS HAEMATOPHAGIC

REACTIONS (8)
  - Multi-organ failure [Fatal]
  - Pulmonary haemorrhage [Fatal]
  - Disseminated intravascular coagulation [Unknown]
  - Acute lymphocytic leukaemia [Unknown]
  - Leukopenia [Unknown]
  - Thrombocytopenia [Unknown]
  - Histiocytosis haematophagic [Unknown]
  - Zygomycosis [Unknown]
